FAERS Safety Report 11102823 (Version 2)
Quarter: 2015Q3

REPORT INFORMATION
  Report Type: Spontaneous
  Country: CA (occurrence: CA)
  Receive Date: 20150511
  Receipt Date: 20150717
  Transmission Date: 20151125
  Serious: Yes (Death, Disabling)
  Sender: FDA-Public Use
  Company Number: CA-JNJFOC-20150422950

PATIENT
  Sex: Male
  Weight: 79.38 kg

DRUGS (1)
  1. RISPERDAL [Suspect]
     Active Substance: RISPERIDONE
     Indication: PRODUCT USED FOR UNKNOWN INDICATION
     Route: 048
     Dates: start: 2014

REACTIONS (3)
  - Feeding disorder [Fatal]
  - Gait disturbance [Not Recovered/Not Resolved]
  - Dementia Alzheimer^s type [Fatal]
